FAERS Safety Report 10517817 (Version 3)
Quarter: 2016Q3

REPORT INFORMATION
  Report Type: Report from Study
  Country: US (occurrence: US)
  Receive Date: 20141015
  Receipt Date: 20160805
  Transmission Date: 20161109
  Serious: Yes (Hospitalization, Other)
  Sender: FDA-Public Use
  Company Number: US-ROCHE-769817

PATIENT
  Age: 5 Year
  Sex: Male
  Weight: 20.8 kg

DRUGS (2)
  1. VISMODEGIB [Suspect]
     Active Substance: VISMODEGIB
     Indication: MEDULLOBLASTOMA
     Dosage: DOSE REPORTED : PO QD ON DAYS 1, AND 4-28 DAYS, TOTAL DOSE ADMINISTERED 2700 MG.
     Route: 048
     Dates: start: 20110318, end: 20110405
  2. VISMODEGIB [Suspect]
     Active Substance: VISMODEGIB
     Dosage: RESTARTED WITH SECOND 150 MG DOSE
     Route: 048

REACTIONS (11)
  - Hypomagnesaemia [Recovered/Resolved]
  - Seizure [Recovered/Resolved]
  - Lethargy [Recovered/Resolved]
  - Hyperglycaemia [Recovered/Resolved]
  - Aspiration [Recovered/Resolved]
  - Laryngeal oedema [Unknown]
  - Hypophosphataemia [Unknown]
  - Hypokalaemia [Recovered/Resolved]
  - Hyponatraemia [Recovered/Resolved]
  - Hypothermia [Recovered/Resolved]
  - Stridor [Recovered/Resolved]

NARRATIVE: CASE EVENT DATE: 20110405
